FAERS Safety Report 20451694 (Version 4)
Quarter: 2023Q2

REPORT INFORMATION
  Report Type: Spontaneous
  Country: US (occurrence: US)
  Receive Date: 20220209
  Receipt Date: 20230406
  Transmission Date: 20230721
  Serious: Yes (Other)
  Sender: FDA-Public Use
  Company Number: US-PFIZER INC-202200212286

PATIENT
  Age: 66 Year
  Sex: Male
  Weight: 129.27 kg

DRUGS (2)
  1. PAXLOVID [Suspect]
     Active Substance: NIRMATRELVIR\RITONAVIR
     Indication: COVID-19 treatment
     Dosage: UNK
     Dates: start: 20220116
  2. PREDNISONE [Concomitant]
     Active Substance: PREDNISONE
     Indication: COVID-19
     Dosage: UNK
     Dates: start: 2022

REACTIONS (20)
  - Stevens-Johnson syndrome [Unknown]
  - Skin lesion [Unknown]
  - Peripheral coldness [Unknown]
  - Skin exfoliation [Unknown]
  - Erythema [Unknown]
  - Arthralgia [Unknown]
  - Peripheral vascular disorder [Unknown]
  - Petechiae [Unknown]
  - Gingival pain [Unknown]
  - Toothache [Unknown]
  - Facial pain [Unknown]
  - Dry eye [Unknown]
  - Eye pain [Unknown]
  - Pain in extremity [Unknown]
  - Rash [Unknown]
  - Flushing [Unknown]
  - Stomatitis [Unknown]
  - Pruritus [Unknown]
  - Dry skin [Unknown]
  - Off label use [Unknown]

NARRATIVE: CASE EVENT DATE: 20220116
